FAERS Safety Report 8541818-3 (Version None)
Quarter: 2012Q3

REPORT INFORMATION
  Report Type: 
  Country: None (occurrence: None)
  Receive Date: 20120726
  Receipt Date: 20110829
  Transmission Date: 20120928
  Serious: No
  Sender: FDA-Public Use
  Company Number: US-ASTRAZENECA-2011SE52026

PATIENT
  Age: 77 Year
  Sex: Male
  Weight: 111.1 kg

DRUGS (5)
  1. SEROQUEL [Suspect]
     Route: 048
  2. BENICAR HCT [Concomitant]
  3. SEROQUEL [Suspect]
     Indication: DEPRESSION
     Route: 048
     Dates: start: 20110825
  4. OMEPRAZOLE [Concomitant]
  5. DULOXETIME HYDROCHLORIDE [Concomitant]

REACTIONS (3)
  - BLOOD PRESSURE DECREASED [None]
  - SLEEP DISORDER [None]
  - INSOMNIA [None]
